FAERS Safety Report 19258365 (Version 1)
Quarter: 2021Q2

REPORT INFORMATION
  Report Type: Spontaneous
  Country: US (occurrence: US)
  Receive Date: 20210514
  Receipt Date: 20210514
  Transmission Date: 20210717
  Serious: Yes (Life-Threatening, Other)
  Sender: FDA-Public Use
  Company Number: US-BAYER-2021-137682

PATIENT
  Age: 56 Year
  Sex: Female

DRUGS (4)
  1. BRILINTA [Suspect]
     Active Substance: TICAGRELOR
     Dosage: UNK
  2. HEPARIN [Suspect]
     Active Substance: HEPARIN SODIUM
     Dosage: UNK
  3. TIROFIBAN [Suspect]
     Active Substance: TIROFIBAN
  4. ASPIRIN (CARDIO) [Suspect]
     Active Substance: ASPIRIN
     Indication: ACUTE MYOCARDIAL INFARCTION
     Dosage: UNK

REACTIONS (10)
  - Haemoptysis [Recovered/Resolved]
  - Breath sounds abnormal [None]
  - Pyrexia [None]
  - Pulmonary alveolar haemorrhage [None]
  - Rhonchi [None]
  - Tachycardia [None]
  - Microcytic anaemia [None]
  - Dyspnoea [Recovered/Resolved]
  - Acute respiratory failure [None]
  - Tachypnoea [None]
